FAERS Safety Report 5259469-5 (Version None)
Quarter: 2007Q1

REPORT INFORMATION
  Report Type: 
  Country: None (occurrence: None)
  Receive Date: 20070305
  Receipt Date: 20070223
  Transmission Date: 20070707
  Serious: Yes (Hospitalization, Other)
  Sender: FDA-Public Use
  Company Number: 2004IM000917

PATIENT
  Age: 76 Year
  Sex: Female
  Weight: 108.4097 kg

DRUGS (11)
  1. INTERFERON GAMMA-1B [Suspect]
     Indication: IDIOPATHIC PULMONARY FIBROSIS
     Dosage: 200 UG, TIW, SUBCUTANEOUS
     Route: 058
     Dates: start: 20010601, end: 20041103
  2. INTERFERON GAMMA-1B [Suspect]
     Indication: IDIOPATHIC PULMONARY FIBROSIS
     Dosage: 200 UG, TIW, SUBCUTANEOUS
     Route: 058
     Dates: start: 20041124
  3. PREDNISONE [Concomitant]
  4. GLUCOPHAGE [Concomitant]
  5. PRILOSEC [Concomitant]
  6. HYDROCODONE [Concomitant]
  7. ASCORBIC ACID [Concomitant]
  8. CALCIUM W/MAGNESIUM [Concomitant]
  9. MULTI-VITAMINS [Concomitant]
  10. NYSTATIN [Concomitant]
  11. BENZONATATE [Concomitant]

REACTIONS (4)
  - ANAEMIA [None]
  - COLONIC POLYP [None]
  - CONDITION AGGRAVATED [None]
  - HAEMORRHOIDS [None]
